FAERS Safety Report 6834815-7 (Version None)
Quarter: 2010Q3

REPORT INFORMATION
  Report Type: 
  Country: None (occurrence: None)
  Receive Date: 20100712
  Receipt Date: 20070423
  Transmission Date: 20110219
  Serious: No
  Sender: FDA-Public Use
  Company Number: US-PFIZER INC-2007033733

PATIENT
  Sex: Female
  Weight: 95.454 kg

DRUGS (7)
  1. CHANTIX [Suspect]
     Dates: start: 20070401
  2. BENADRYL [Suspect]
     Indication: RASH
     Dates: start: 20070421
  3. BENADRYL [Suspect]
     Indication: URTICARIA
  4. HYDROCHLOROTHIAZIDE [Concomitant]
  5. POTASSIUM [Concomitant]
  6. PENICILLIN NOS [Concomitant]
  7. KEFLEX [Concomitant]

REACTIONS (2)
  - RASH [None]
  - URTICARIA [None]
